FAERS Safety Report 6823410-1 (Version None)
Quarter: 2010Q3

REPORT INFORMATION
  Report Type: 
  Country: None (occurrence: None)
  Receive Date: 20100708
  Receipt Date: 20100629
  Transmission Date: 20110219
  Serious: Yes (Other)
  Sender: FDA-Public Use
  Company Number: US-PFIZER INC-2006111128

PATIENT
  Sex: Male
  Weight: 120.2 kg

DRUGS (15)
  1. VIAGRA [Suspect]
     Indication: ERECTILE DYSFUNCTION
     Dosage: 50 MG, AS NEEDED
  2. VIAGRA [Suspect]
     Dosage: 100 MG, UNK
     Route: 048
  3. DILTIAZEM [Concomitant]
     Dosage: UNK
  4. ZOCOR [Concomitant]
     Dosage: UNK
  5. FUROSEMIDE [Concomitant]
     Dosage: UNK
  6. POTASSIUM CHLORIDE [Concomitant]
     Dosage: UNK
  7. OMEPRAZOLE [Concomitant]
     Dosage: UNK
  8. VITAMIN E [Concomitant]
     Dosage: UNK
  9. VITAMIN C [Concomitant]
     Dosage: UNK
  10. MULTI-VITAMINS [Concomitant]
     Dosage: UNK
  11. ATROVENT [Concomitant]
     Dosage: UNK
     Route: 055
  12. ALBUTEROL [Concomitant]
     Dosage: UNK
     Route: 055
  13. PROPAFENONE HCL [Concomitant]
     Dosage: UNK
  14. DIAZEPAM [Concomitant]
  15. SYMBICORT [Concomitant]
     Indication: EMPHYSEMA
     Dosage: UNK

REACTIONS (12)
  - ANXIETY [None]
  - COUGH [None]
  - DIVERTICULUM [None]
  - DRUG INEFFECTIVE [None]
  - DYSPNOEA [None]
  - EJACULATION FAILURE [None]
  - ERECTILE DYSFUNCTION [None]
  - FLUSHING [None]
  - GYNAECOMASTIA [None]
  - HEADACHE [None]
  - VISION BLURRED [None]
  - WEIGHT INCREASED [None]
